FAERS Safety Report 8358646-4 (Version None)
Quarter: 2012Q2

REPORT INFORMATION
  Report Type: 
  Country: None (occurrence: None)
  Receive Date: 20120514
  Receipt Date: 20120511
  Transmission Date: 20120825
  Serious: Yes (Hospitalization, Other)
  Sender: FDA-Public Use
  Company Number: US-ROCHE-1062503

PATIENT
  Sex: Male
  Weight: 108.96 kg

DRUGS (1)
  1. ZELBORAF [Suspect]
     Indication: MALIGNANT MELANOMA
     Route: 048
     Dates: start: 20120412, end: 20120417

REACTIONS (3)
  - INSOMNIA [None]
  - ABDOMINAL PAIN [None]
  - DISEASE PROGRESSION [None]
